FAERS Safety Report 14515317 (Version 2)
Quarter: 2018Q1

REPORT INFORMATION
  Report Type: Spontaneous
  Country: US (occurrence: US)
  Receive Date: 20180210
  Receipt Date: 20180311
  Transmission Date: 20180509
  Serious: No
  Sender: FDA-Public Use
  Company Number: US-B.I. PHARMACEUTICALS,INC./RIDGEFIELD-2018-BI-006848

PATIENT
  Age: 53 Year
  Sex: Female

DRUGS (9)
  1. WARFARIN [Concomitant]
     Active Substance: WARFARIN
     Indication: MYOCARDIAL INFARCTION
     Dosage: 1 TABLET DIALY;  FORM STRENGTH: 6MG; FORMULATION: TABLET
     Route: 048
     Dates: start: 2014
  2. B COMPLEX VITAMIN [Concomitant]
     Indication: PRODUCT USED FOR UNKNOWN INDICATION
     Route: 065
  3. PAROXETINE. [Concomitant]
     Active Substance: PAROXETINE
     Indication: PRODUCT USED FOR UNKNOWN INDICATION
     Dosage: 1 TABLET DAIL;  FORM STRENGTH: 10MG; FORMULATION: TABLET
     Route: 048
  4. PROLASTIN-C [Concomitant]
     Active Substance: .ALPHA.1-PROTEINASE INHIBITOR HUMAN
     Indication: ALPHA-1 ANTI-TRYPSIN DEFICIENCY
     Route: 065
  5. LOSARTAN. [Concomitant]
     Active Substance: LOSARTAN
     Indication: CARDIAC ANEURYSM
     Dosage: 1 TABLET DIALY;  FORM STRENGTH: 100MG; FORMULATION: TABLET
     Route: 048
  6. DULERA [Concomitant]
     Active Substance: FORMOTEROL FUMARATE DIHYDRATE\MOMETASONE FUROATE
     Indication: ALPHA-1 ANTI-TRYPSIN DEFICIENCY
     Dosage: FORM STRENGTH: 200MCG/5MCG
     Route: 055
  7. WARFARIN [Concomitant]
     Active Substance: WARFARIN
     Indication: FACTOR V DEFICIENCY
  8. SPIRIVA [Suspect]
     Active Substance: TIOTROPIUM BROMIDE MONOHYDRATE
     Indication: ALPHA-1 ANTI-TRYPSIN DEFICIENCY
     Dosage: FORM STRENGTH: 18 MCG; FORMULATION: CAPSULE ACTION(S) TAKEN WITH PRODUCT: DOSE NOT CHANGED
     Route: 055
     Dates: start: 2008
  9. WARFARIN [Concomitant]
     Active Substance: WARFARIN
     Indication: METHYLENETETRAHYDROFOLATE REDUCTASE DEFICIENCY

REACTIONS (6)
  - Pharyngeal haemorrhage [Recovered/Resolved]
  - Oropharyngeal pain [Recovered/Resolved]
  - Off label use [Unknown]
  - Inappropriate schedule of drug administration [Not Recovered/Not Resolved]
  - Product quality issue [Unknown]
  - Pharyngeal lesion [Recovered/Resolved]

NARRATIVE: CASE EVENT DATE: 20180203
